FAERS Safety Report 24527970 (Version 4)
Quarter: 2024Q4

REPORT INFORMATION
  Report Type: Report from Study
  Country: JP (occurrence: JP)
  Receive Date: 20241021
  Receipt Date: 20241124
  Transmission Date: 20250114
  Serious: Yes (Hospitalization)
  Sender: ABBVIE
  Company Number: JP-ABBVIE-5899815

PATIENT
  Age: 65 Year
  Sex: Female

DRUGS (3)
  1. FOSCARBIDOPA\FOSLEVODOPA [Suspect]
     Active Substance: FOSCARBIDOPA\FOSLEVODOPA
     Indication: Parkinson^s disease
     Route: 058
     Dates: start: 20240730
  2. PERGOLIDE MESILATE [Concomitant]
     Indication: Parkinson^s disease
  3. ROPINIROLE HYDROCHLORIDE [Concomitant]
     Active Substance: ROPINIROLE HYDROCHLORIDE
     Indication: Parkinson^s disease
     Route: 048

REACTIONS (13)
  - Posture abnormal [Recovering/Resolving]
  - Infusion site reaction [Unknown]
  - Infusion site reaction [Unknown]
  - Infusion site discharge [Unknown]
  - Irritability [Unknown]
  - Infusion site reaction [Unknown]
  - Mobility decreased [Unknown]
  - Infusion site scar [Unknown]
  - Infusion site discharge [Unknown]
  - Malaise [Not Recovered/Not Resolved]
  - Speech disorder [Unknown]
  - Feeling cold [Not Recovered/Not Resolved]
  - Parkinson^s disease [Unknown]

NARRATIVE: CASE EVENT DATE: 20240101
